FAERS Safety Report 7673106-1 (Version None)
Quarter: 2011Q3

REPORT INFORMATION
  Report Type: 
  Country: None (occurrence: None)
  Receive Date: 20110810
  Receipt Date: 20110803
  Transmission Date: 20111222
  Serious: Yes (Hospitalization, Other)
  Sender: FDA-Public Use
  Company Number: US-BIOGENIDEC-2011BI022911

PATIENT
  Age: 44 Year
  Sex: Female

DRUGS (10)
  1. AVONEX [Suspect]
     Route: 030
     Dates: start: 20080101
  2. REBIF [Concomitant]
     Indication: MULTIPLE SCLEROSIS
  3. COPAXONE [Concomitant]
     Indication: MULTIPLE SCLEROSIS
  4. COUMADIN [Concomitant]
     Indication: COAGULOPATHY
  5. LEVAQUIN [Concomitant]
     Indication: PROPHYLAXIS
  6. AVONEX [Suspect]
     Indication: MULTIPLE SCLEROSIS
     Route: 030
     Dates: start: 20030101, end: 20070101
  7. AVONEX [Suspect]
     Route: 030
     Dates: start: 20000201, end: 20030101
  8. CIPROFLOXACIN HCL [Concomitant]
     Indication: PROPHYLAXIS
  9. MEDICATIONS (NOS) [Concomitant]
     Indication: CONVULSION
  10. IMURAN [Concomitant]
     Indication: MULTIPLE SCLEROSIS
     Dates: start: 19900101

REACTIONS (12)
  - INTESTINAL OBSTRUCTION [None]
  - NEPHROLITHIASIS [None]
  - MEDICAL DEVICE COMPLICATION [None]
  - ESCHERICHIA URINARY TRACT INFECTION [None]
  - INFLUENZA LIKE ILLNESS [None]
  - VOMITING [None]
  - EYE INFECTION STAPHYLOCOCCAL [None]
  - VULVOVAGINAL MYCOTIC INFECTION [None]
  - ARTHROPATHY [None]
  - MULTIPLE SCLEROSIS RELAPSE [None]
  - RESPIRATORY TRACT INFECTION VIRAL [None]
  - STAPHYLOCOCCAL SKIN INFECTION [None]
